FAERS Safety Report 21908289 (Version 1)
Quarter: 2023Q1

REPORT INFORMATION
  Report Type: Report from Study
  Country: PA (occurrence: PA)
  Receive Date: 20230125
  Receipt Date: 20230125
  Transmission Date: 20230418
  Serious: Yes (Other)
  Sender: FDA-Public Use
  Company Number: PA-002147023-NVSC2023PA013879

PATIENT
  Sex: Female

DRUGS (1)
  1. IRBESARTAN [Suspect]
     Active Substance: IRBESARTAN
     Indication: Hypertension
     Dosage: 300 MG, QD (1 X 300MG)
     Route: 048
     Dates: start: 2019

REACTIONS (8)
  - Breast cancer [Unknown]
  - Breast oedema [Recovering/Resolving]
  - Oedema peripheral [Recovering/Resolving]
  - Breast pain [Recovering/Resolving]
  - Pain in extremity [Recovering/Resolving]
  - Metastases to bone [Unknown]
  - Osteoporosis [Unknown]
  - Hand fracture [Unknown]

NARRATIVE: CASE EVENT DATE: 20210101
